FAERS Safety Report 7817771-4 (Version None)
Quarter: 2011Q4

REPORT INFORMATION
  Report Type: 
  Country: None (occurrence: None)
  Receive Date: 20111017
  Receipt Date: 20111017
  Transmission Date: 20120403
  Serious: Yes (Death, Hospitalization, Other)
  Sender: FDA-Public Use
  Company Number: US-PFIZER INC-2011009096

PATIENT
  Sex: Female

DRUGS (10)
  1. LOPERAMIDE [Concomitant]
     Indication: DIARRHOEA
     Dosage: 4 MG, UNK
     Route: 048
  2. ABILIFY [Concomitant]
     Indication: BIPOLAR DISORDER
     Dosage: UNK
     Dates: start: 20090923
  3. GEODON [Suspect]
     Indication: LETHARGY
     Dosage: 20 MG, UNK
     Route: 030
     Dates: start: 20090926
  4. GEODON [Suspect]
     Indication: NAUSEA
  5. GEODON [Suspect]
     Indication: VOMITING
  6. RISPERDAL [Concomitant]
     Indication: AGGRESSION
     Dosage: 1 MG, UNK
     Route: 048
     Dates: start: 20090926, end: 20090926
  7. GEODON [Suspect]
     Indication: DIARRHOEA
  8. NITROFURANTOIN [Concomitant]
     Indication: URINARY TRACT INFECTION
     Dosage: UNK
     Dates: start: 20090924
  9. PROMETHAZINE [Concomitant]
     Indication: NAUSEA
     Dosage: 12.5 MG, UNK
     Route: 030
  10. PROMETHAZINE [Concomitant]
     Indication: VOMITING

REACTIONS (13)
  - DIARRHOEA [None]
  - AGGRESSION [None]
  - ELECTROCARDIOGRAM QT PROLONGED [None]
  - INCONTINENCE [None]
  - HEART RATE INCREASED [None]
  - NAUSEA [None]
  - MOVEMENT DISORDER [None]
  - UNRESPONSIVE TO STIMULI [None]
  - CARDIAC ARREST [None]
  - VOMITING [None]
  - REFUSAL OF TREATMENT BY PATIENT [None]
  - ASTHENIA [None]
  - DYSPNOEA [None]
